FAERS Safety Report 9355884 (Version 1)
Quarter: 2013Q2

REPORT INFORMATION
  Report Type: Spontaneous
  Country: FR (occurrence: FR)
  Receive Date: 20130619
  Receipt Date: 20130619
  Transmission Date: 20140414
  Serious: Yes (Hospitalization)
  Sender: FDA-Public Use
  Company Number: FR-MERCK-1306FRA005830

PATIENT
  Age: 37 Year
  Sex: Female

DRUGS (1)
  1. NOXAFIL [Suspect]
     Indication: ORAL CANDIDIASIS
     Dosage: UNK
     Route: 048
     Dates: start: 20130416, end: 20130423

REACTIONS (1)
  - Neutropenia [Recovered/Resolved]
